FAERS Safety Report 5835860-0 (Version None)
Quarter: 2008Q3

REPORT INFORMATION
  Report Type: 
  Country: None (occurrence: None)
  Receive Date: 20080730
  Receipt Date: 20070809
  Transmission Date: 20090109
  Serious: Yes (Other)
  Sender: FDA-Public Use
  Company Number: 39780

PATIENT
  Age: 74 Year
  Sex: Male
  Weight: 65.318 kg

DRUGS (2)
  1. PACLITAXEL [Suspect]
     Indication: METASTATIC NEOPLASM
     Dosage: 320MG/93 WKS
     Route: 042
     Dates: start: 20070613, end: 20070713
  2. CARBOPLATIN [Concomitant]

REACTIONS (3)
  - FLUSHING [None]
  - HYPERSENSITIVITY [None]
  - HYPERTENSION [None]
